FAERS Safety Report 6731859-0 (Version None)
Quarter: 2010Q2

REPORT INFORMATION
  Report Type: 
  Country: None (occurrence: None)
  Receive Date: 20100519
  Receipt Date: 20100510
  Transmission Date: 20101027
  Serious: Yes (Hospitalization, Other)
  Sender: FDA-Public Use
  Company Number: AU-NOVOPROD-305033

PATIENT
  Age: 60 Year
  Sex: Male
  Weight: 86 kg

DRUGS (11)
  1. NOVORAPID FLEXPEN [Suspect]
     Indication: TYPE 2 DIABETES MELLITUS
     Dosage: 51 IU, QD, 17 UNITS THREE TIMES DAILY)
     Route: 058
     Dates: start: 20090615
  2. WARFARIN SODIUM [Concomitant]
     Dosage: 3 MG, QD
  3. LANTUS [Concomitant]
     Indication: TYPE 2 DIABETES MELLITUS
     Dosage: 45 IU, QD AT NIGHT
     Route: 058
  4. BRUFEN                             /00109201/ [Concomitant]
     Dosage: 400 MG TWICE DAILY
  5. PARACETAMOL [Concomitant]
     Dosage: 500 MG, QD
  6. CODEINE SUL TAB [Concomitant]
     Dosage: 8 MG, QD
  7. AMLODIPINE [Concomitant]
     Dosage: 5 MG, QD
  8. RAMIPRIL [Concomitant]
     Dosage: 10 MG, QD
  9. ROSUVASTATIN [Concomitant]
     Dosage: 40 MG, QD
  10. METFORMIN HYDROCHLORIDE [Concomitant]
     Dosage: 1 G TWICE DAILY
  11. DIGOXIN [Concomitant]
     Dosage: 250 MG, QD

REACTIONS (2)
  - BLOOD GLUCOSE DECREASED [None]
  - LOSS OF CONSCIOUSNESS [None]
